FAERS Safety Report 4887108-1 (Version None)
Quarter: 2006Q1

REPORT INFORMATION
  Report Type: 
  Country: None (occurrence: None)
  Receive Date: 20060118
  Receipt Date: 20060110
  Transmission Date: 20060701
  Serious: Yes (Hospitalization)
  Sender: FDA-Public Use
  Company Number: 2005BI018684

PATIENT
  Age: 63 Year
  Sex: Female
  Weight: 44.4525 kg

DRUGS (2)
  1. AVONEX [Suspect]
     Indication: MULTIPLE SCLEROSIS
     Dosage: 30 UG; QW; IM
     Route: 030
  2. PREMPRO [Concomitant]

REACTIONS (6)
  - ABNORMAL BEHAVIOUR [None]
  - ASTHENIA [None]
  - BREAST CANCER FEMALE [None]
  - MEMORY IMPAIRMENT [None]
  - PANIC REACTION [None]
  - THYROID DISORDER [None]
